FAERS Safety Report 14985888 (Version 5)
Quarter: 2018Q4

REPORT INFORMATION
  Report Type: Spontaneous
  Country: JP (occurrence: JP)
  Receive Date: 20180607
  Receipt Date: 20181109
  Transmission Date: 20190204
  Serious: Yes (Hospitalization, Other)
  Sender: FDA-Public Use
  Company Number: JP-LUNDBECK-DKLU2049760

PATIENT
  Age: 1 Decade
  Sex: Female

DRUGS (5)
  1. ZONISAMIDE. [Concomitant]
     Active Substance: ZONISAMIDE
     Indication: INFANTILE SPASMS
     Route: 065
     Dates: start: 2018
  2. SABRIL [Suspect]
     Active Substance: VIGABATRIN
     Route: 048
     Dates: start: 20180418, end: 20180528
  3. SABRIL [Suspect]
     Active Substance: VIGABATRIN
     Route: 048
     Dates: start: 20180411, end: 20180417
  4. NITRAZEPAM [Concomitant]
     Active Substance: NITRAZEPAM
     Indication: INFANTILE SPASMS
     Route: 065
     Dates: start: 2018
  5. SABRIL [Suspect]
     Active Substance: VIGABATRIN
     Indication: INFANTILE SPASMS
     Route: 048
     Dates: start: 20180404, end: 20180410

REACTIONS (5)
  - Hyporesponsive to stimuli [Unknown]
  - Poor sucking reflex [Unknown]
  - Respiratory depression [Recovered/Resolved]
  - Pulmonary oedema [Recovered/Resolved]
  - Encephalopathy [Recovered/Resolved]

NARRATIVE: CASE EVENT DATE: 201805
